FAERS Safety Report 6393206-6 (Version None)
Quarter: 2009Q4

REPORT INFORMATION
  Report Type: 
  Country: None (occurrence: None)
  Receive Date: 20091008
  Receipt Date: 20090929
  Transmission Date: 20100525
  Serious: Yes (Other)
  Sender: FDA-Public Use
  Company Number: US-WYE-H11275409

PATIENT
  Sex: Female
  Weight: 99.88 kg

DRUGS (3)
  1. PRISTIQ [Suspect]
     Indication: OBSESSIVE-COMPULSIVE DISORDER
     Route: 048
     Dates: start: 20090910, end: 20090922
  2. PRISTIQ [Suspect]
     Indication: POST-TRAUMATIC STRESS DISORDER
  3. CRESTOR [Concomitant]
     Dosage: UNKNOWN

REACTIONS (10)
  - DIZZINESS [None]
  - DRUG WITHDRAWAL SYNDROME [None]
  - EYE SWELLING [None]
  - FEELING ABNORMAL [None]
  - HEPATIC ENZYME INCREASED [None]
  - HYPERSENSITIVITY [None]
  - INSOMNIA [None]
  - OEDEMA PERIPHERAL [None]
  - SUICIDAL IDEATION [None]
  - SWELLING FACE [None]
